FAERS Safety Report 20935276 (Version 1)
Quarter: 2022Q2

REPORT INFORMATION
  Report Type: Spontaneous
  Country: US (occurrence: US)
  Receive Date: 20220609
  Receipt Date: 20220609
  Transmission Date: 20220721
  Serious: Yes (Other)
  Sender: FDA-Public Use
  Company Number: US-SUN PHARMACEUTICAL INDUSTRIES LTD-2022R1-339706

PATIENT
  Age: 83 Year
  Sex: Female

DRUGS (4)
  1. OCTREOTIDE [Suspect]
     Active Substance: OCTREOTIDE
     Indication: Product used for unknown indication
     Dosage: 30 MILLIGRAM, MONTHLY
     Route: 030
  2. VERAPAMIL [Suspect]
     Active Substance: VERAPAMIL HYDROCHLORIDE
     Indication: Hypoglycaemia
     Dosage: 80 MILLIGRAM, DAILY
     Route: 065
  3. DIAZOXIDE [Suspect]
     Active Substance: DIAZOXIDE
     Indication: Hyperinsulinism
     Dosage: 100 MILLIGRAM, TID
     Route: 065
  4. DIAZOXIDE [Suspect]
     Active Substance: DIAZOXIDE
     Dosage: 125 MILLIGRAM, TID
     Route: 065

REACTIONS (2)
  - Drug ineffective [Unknown]
  - Facial bones fracture [Unknown]
